FAERS Safety Report 4443608-X (Version None)
Quarter: 2004Q3

REPORT INFORMATION
  Report Type: 
  Country: None (occurrence: None)
  Receive Date: 20040908
  Receipt Date: 20040831
  Transmission Date: 20050211
  Serious: Yes (Death)
  Sender: FDA-Public Use
  Company Number: US-JNJFOC-20040900535

PATIENT
  Age: 82 Year
  Sex: Male

DRUGS (2)
  1. HALDOL [Suspect]
     Route: 065
  2. ZYPREXA [Concomitant]

REACTIONS (1)
  - UNEVALUABLE EVENT [None]
